FAERS Safety Report 25077366 (Version 2)
Quarter: 2025Q1

REPORT INFORMATION
  Report Type: Spontaneous
  Country: US (occurrence: US)
  Receive Date: 20250314
  Receipt Date: 20250324
  Transmission Date: 20250408
  Serious: Yes (Other)
  Sender: SYNDAX
  Company Number: US-SYNDAX PHARMACEUTICALS, INC.-2025US000238

PATIENT
  Age: 42 Year
  Sex: Male
  Weight: 97.976 kg

DRUGS (2)
  1. REVUFORJ [Suspect]
     Active Substance: REVUMENIB CITRATE
     Indication: Acute myeloid leukaemia
     Dosage: 110 MILLIGRAM (TOTAL DOSE: 270 MILLIGRAM), BID
     Route: 048
     Dates: start: 20241218
  2. REVUFORJ [Suspect]
     Active Substance: REVUMENIB CITRATE
     Dosage: 160 MILLIGRAM (TOTAL DOSE: 270 MILLIGRAM), BID
     Route: 048
     Dates: start: 20241218

REACTIONS (3)
  - Cardiac failure [Unknown]
  - Haemoglobin decreased [Unknown]
  - Platelet count decreased [Unknown]

NARRATIVE: CASE EVENT DATE: 20250101
